FAERS Safety Report 14025153 (Version 4)
Quarter: 2017Q4

REPORT INFORMATION
  Report Type: Spontaneous
  Country: JP (occurrence: JP)
  Receive Date: 20170929
  Receipt Date: 20171103
  Transmission Date: 20180321
  Serious: Yes (Other)
  Sender: FDA-Public Use
  Company Number: PHJP2017JP029362

PATIENT
  Age: 56 Year
  Sex: Male

DRUGS (17)
  1. MAGMITT [Concomitant]
     Active Substance: MAGNESIUM OXIDE
     Indication: CONSTIPATION
     Dosage: 500 MG, TID
     Route: 048
  2. FUROSEMIDE. [Concomitant]
     Active Substance: FUROSEMIDE
     Indication: OEDEMA DUE TO HEPATIC DISEASE
     Dosage: 20 MG, QD
     Route: 048
  3. AZUNOL [Concomitant]
     Active Substance: SODIUM GUALENATE
     Indication: COUGH
     Dosage: 5 ML, UNK
     Route: 065
     Dates: start: 20170812
  4. TRANEXAMIC ACID. [Concomitant]
     Active Substance: TRANEXAMIC ACID
     Indication: ORAL PAIN
     Dosage: 250 MG, TID
     Route: 048
     Dates: start: 20170812
  5. URSODEOXYCHOL [Concomitant]
     Indication: HEPATIC CIRRHOSIS
     Dosage: 200 MG, TID
     Route: 048
  6. LIVACT [Concomitant]
     Active Substance: AMINO ACIDS
     Indication: HEPATIC CIRRHOSIS
     Dosage: 4.15 G, TID
     Route: 048
  7. ORADOL S [Concomitant]
     Indication: PHARYNGITIS
     Dosage: 0.5 MG, TID
     Route: 048
     Dates: start: 20170812
  8. DOVOBET [Concomitant]
     Active Substance: BETAMETHASONE\CALCIPOTRIENE
     Indication: PSORIASIS
     Dosage: AS APPROPRIATE, QD
     Route: 062
     Dates: start: 20160509
  9. PIARLE [Concomitant]
     Indication: HEPATIC CIRRHOSIS
     Dosage: 20 ML, TID
     Route: 065
  10. KANAMYCIN [Concomitant]
     Active Substance: KANAMYCIN\KANAMYCIN A SULFATE
     Indication: HEPATIC ENCEPHALOPATHY
     Dosage: UNK
     Route: 065
  11. BROTIZOLAM [Concomitant]
     Active Substance: BROTIZOLAM
     Indication: INSOMNIA
     Dosage: 0.25 MG, QD
     Route: 048
  12. OMEPRAZOLE. [Concomitant]
     Active Substance: OMEPRAZOLE
     Indication: GASTROINTESTINAL DISORDER
     Dosage: 20 MG, QD
     Route: 048
  13. COSENTYX [Suspect]
     Active Substance: SECUKINUMAB
     Dosage: 300 MG, QMO
     Route: 058
     Dates: start: 20160715, end: 20170721
  14. COSENTYX [Suspect]
     Active Substance: SECUKINUMAB
     Indication: PSORIASIS
     Dosage: 300 MG, QW
     Route: 058
     Dates: start: 20160509, end: 20160613
  15. L CARTIN [Concomitant]
     Active Substance: LEVOCARNITINE HYDROCHLORIDE
     Indication: CARNITINE DEFICIENCY
     Dosage: 10 ML, TID
     Route: 048
  16. ALOSENN [Concomitant]
     Active Substance: SENNA LEAF
     Indication: CONSTIPATION
     Dosage: 0.5 G, QD
     Route: 048
  17. TRANEXAMIC ACID. [Concomitant]
     Active Substance: TRANEXAMIC ACID
     Indication: STOMATITIS

REACTIONS (5)
  - Oesophageal candidiasis [Recovering/Resolving]
  - Colitis [Recovering/Resolving]
  - Ulcer [Unknown]
  - Large intestine erosion [Unknown]
  - Pyrexia [Recovered/Resolved]

NARRATIVE: CASE EVENT DATE: 20170727
